FAERS Safety Report 7407027-6 (Version None)
Quarter: 2011Q2

REPORT INFORMATION
  Report Type: 
  Country: None (occurrence: None)
  Receive Date: 20110411
  Receipt Date: 20110208
  Transmission Date: 20111010
  Serious: Yes (Hospitalization, Other)
  Sender: FDA-Public Use
  Company Number: US-BAYER-201036490NA

PATIENT
  Age: 29 Year
  Sex: Female
  Weight: 126.98 kg

DRUGS (14)
  1. YAZ [Suspect]
     Indication: ACNE
     Dosage: UNK UNK, UNK
     Route: 048
     Dates: start: 20070706, end: 20080324
  2. LEXAPRO [Concomitant]
     Dosage: 10 MG, UNK
  3. AMBIEN [Concomitant]
     Dosage: 5 MG, UNK
  4. YASMIN [Suspect]
     Indication: ACNE
     Dosage: UNK UNK, UNK
     Route: 048
     Dates: start: 20070706, end: 20080324
  5. YASMIN [Suspect]
     Indication: PREMENSTRUAL SYNDROME
     Dosage: UNK
     Dates: start: 20080717, end: 20090223
  6. NAPROXEN [Concomitant]
  7. ZITHROMAX [Concomitant]
     Dosage: 1 G, UNK
     Route: 048
  8. TRAZODONE [Concomitant]
     Dosage: 100 MG, QD
  9. OCELLA [Suspect]
     Indication: ACNE
     Dosage: UNK UNK, UNK
     Route: 048
     Dates: start: 20070706, end: 20080324
  10. CLONAZEPAM [Concomitant]
     Dosage: 1 MG, UNK
  11. OCELLA [Suspect]
     Indication: PREMENSTRUAL SYNDROME
     Dosage: UNK
     Dates: start: 20080717, end: 20090223
  12. YAZ [Suspect]
     Indication: PREMENSTRUAL SYNDROME
     Dosage: UNK
     Dates: start: 20080717, end: 20090223
  13. ANTIBIOTICS [Concomitant]
  14. ROCEPHIN [Concomitant]
     Dosage: 250 MG, UNK
     Route: 030

REACTIONS (5)
  - CHOLECYSTITIS [None]
  - DEPRESSION [None]
  - GALLBLADDER DISORDER [None]
  - VAGINAL HAEMORRHAGE [None]
  - BIPOLAR DISORDER [None]
